FAERS Safety Report 5710667-3 (Version None)
Quarter: 2008Q2

REPORT INFORMATION
  Report Type: 
  Country: None (occurrence: None)
  Receive Date: 20080415
  Receipt Date: 20080407
  Transmission Date: 20081010
  Serious: Yes (Hospitalization)
  Sender: FDA-Public Use
  Company Number: 2008SP005663

PATIENT
  Age: 29 Year
  Sex: Male
  Weight: 56 kg

DRUGS (2)
  1. PEG-INTRON [Suspect]
     Indication: HEPATITIS B
     Dosage: 80 MCG; QW; SC, 80 MCG; QW; SC
     Route: 058
     Dates: start: 20080122, end: 20080311
  2. PEG-INTRON [Suspect]
     Indication: HEPATITIS B
     Dosage: 80 MCG; QW; SC, 80 MCG; QW; SC
     Route: 058
     Dates: start: 20080326

REACTIONS (7)
  - ALANINE AMINOTRANSFERASE INCREASED [None]
  - ANOREXIA [None]
  - ASPARTATE AMINOTRANSFERASE INCREASED [None]
  - BLOOD BILIRUBIN INCREASED [None]
  - DIZZINESS [None]
  - FATIGUE [None]
  - HEPATIC ENZYME INCREASED [None]
